FAERS Safety Report 25780681 (Version 1)
Quarter: 2025Q3

REPORT INFORMATION
  Report Type: Spontaneous
  Country: CN (occurrence: CN)
  Receive Date: 20250909
  Receipt Date: 20250909
  Transmission Date: 20251020
  Serious: Yes (Hospitalization)
  Sender: BRACCO
  Company Number: CN-BRACCO-2025CN06096

PATIENT
  Age: 73 Year
  Sex: Female

DRUGS (1)
  1. IOMEPROL [Suspect]
     Active Substance: IOMEPROL
     Indication: Imaging procedure
     Route: 042
     Dates: start: 20250829, end: 20250829

REACTIONS (7)
  - Confusional state [Recovering/Resolving]
  - Blood pressure immeasurable [Recovering/Resolving]
  - Dysphoria [Recovering/Resolving]
  - Cough [Recovering/Resolving]
  - Disorganised speech [Recovering/Resolving]
  - Cyanosis [Recovering/Resolving]
  - Trismus [Recovering/Resolving]

NARRATIVE: CASE EVENT DATE: 20250829
